FAERS Safety Report 6609661-X (Version None)
Quarter: 2010Q1

REPORT INFORMATION
  Report Type: 
  Country: None (occurrence: None)
  Receive Date: 20100224
  Receipt Date: 20100211
  Transmission Date: 20100710
  Serious: Yes (Other)
  Sender: FDA-Public Use
  Company Number: DSA_42583_2010

PATIENT
  Sex: Male

DRUGS (3)
  1. BUPROPION HYDROCHLORIDE [Suspect]
     Indication: DEPRESSION
     Dosage: (150 MG QD ORAL)
     Route: 048
     Dates: start: 20100121
  2. BUPROPION HYDROCHLORIDE [Suspect]
     Indication: LETHARGY
     Dosage: (150 MG QD ORAL)
     Route: 048
     Dates: start: 20100121
  3. PREGABALIN [Concomitant]

REACTIONS (3)
  - DIZZINESS [None]
  - EPISTAXIS [None]
  - HYPERTENSIVE CRISIS [None]
